FAERS Safety Report 25935683 (Version 1)
Quarter: 2025Q4

REPORT INFORMATION
  Report Type: Spontaneous
  Country: US (occurrence: US)
  Receive Date: 20251017
  Receipt Date: 20251017
  Transmission Date: 20260118
  Serious: Yes (Death, Other)
  Sender: SANDOZ
  Company Number: US-SANDOZ-SDZ2025US076684

PATIENT
  Sex: Male

DRUGS (4)
  1. AZITHROMYCIN [Suspect]
     Active Substance: AZITHROMYCIN
     Indication: Bacteraemia
     Dosage: UNK
     Route: 065
  2. AMIKACIN [Suspect]
     Active Substance: AMIKACIN
     Indication: Bacteraemia
     Dosage: UNK
     Route: 065
  3. CLOFAZIMINE [Suspect]
     Active Substance: CLOFAZIMINE
     Indication: Bacteraemia
     Dosage: UNK
     Route: 065
     Dates: start: 20250606
  4. TIGECYCLINE [Suspect]
     Active Substance: TIGECYCLINE
     Indication: Bacteraemia
     Dosage: UNK
     Route: 065

REACTIONS (1)
  - Death [Fatal]

NARRATIVE: CASE EVENT DATE: 20250101
